FAERS Safety Report 10368264 (Version 1)
Quarter: 2014Q3

REPORT INFORMATION
  Report Type: Spontaneous
  Country: US (occurrence: None)
  Receive Date: 20140805
  Receipt Date: 20140805
  Transmission Date: 20150326
  Serious: Yes (Hospitalization)
  Sender: FDA-Public Use
  Company Number: NSR_01592_2014

PATIENT
  Age: 20 Year
  Sex: Female

DRUGS (4)
  1. ATENOLOL. [Suspect]
     Active Substance: ATENOLOL
     Indication: HYPERTENSION
  2. VALSARTAN. [Concomitant]
     Active Substance: VALSARTAN
  3. DOXAZOSIN [Concomitant]
     Active Substance: DOXAZOSIN\DOXAZOSIN MESYLATE
  4. AMLODIPINE [Concomitant]
     Active Substance: AMLODIPINE BESYLATE

REACTIONS (10)
  - Toxicity to various agents [None]
  - Respiratory rate increased [None]
  - Hypotension [None]
  - Bradycardia [None]
  - Tearfulness [None]
  - Asthenia [None]
  - Abdominal pain [None]
  - Intestinal ischaemia [None]
  - Haemodynamic instability [None]
  - Emotional distress [None]
